FAERS Safety Report 11301495 (Version 1)
Quarter: 2015Q3

REPORT INFORMATION
  Report Type: Spontaneous
  Country: US (occurrence: US)
  Receive Date: 20150722
  Receipt Date: 20150722
  Transmission Date: 20151125
  Serious: No
  Sender: FDA-Public Use
  Company Number: US-ELI_LILLY_AND_COMPANY-US200909006984

PATIENT
  Age: 66 Year
  Sex: Male

DRUGS (2)
  1. TESTOSTERONE. [Concomitant]
     Active Substance: TESTOSTERONE
     Dosage: UNK, UNKNOWN
  2. HUMATROPE [Suspect]
     Active Substance: SOMATROPIN
     Indication: ONCOLOGIC COMPLICATION
     Dosage: 0.2 MG, UNKNOWN

REACTIONS (6)
  - Off label use [Unknown]
  - Poor quality drug administered [Unknown]
  - Memory impairment [Unknown]
  - Intentional device misuse [Unknown]
  - Hormone level abnormal [Unknown]
  - Malaise [Recovered/Resolved]

NARRATIVE: CASE EVENT DATE: 200907
